FAERS Safety Report 9388021 (Version 3)
Quarter: 2013Q4

REPORT INFORMATION
  Report Type: Spontaneous
  Country: US (occurrence: None)
  Receive Date: 20130701
  Receipt Date: 20131016
  Transmission Date: 20140711
  Serious: Yes (Other)
  Sender: FDA-Public Use
  Company Number: ACO_36904_2013

PATIENT
  Age: 49 Year
  Sex: Female
  Weight: 56.7 kg

DRUGS (7)
  1. AMPYRA [Suspect]
     Indication: MULTIPLE SCLEROSIS
     Route: 048
     Dates: start: 2010
  2. AMPYRA [Suspect]
     Indication: GAIT DISTURBANCE
     Route: 048
     Dates: start: 2010
  3. BACLOFEN (BACLOFEN) [Concomitant]
  4. PROGESTERONE (PROGESTERONE) [Concomitant]
  5. VIVELLE DOT (ESTRADIOL) [Concomitant]
  6. KLONOPIN (CLONAZEPAM) [Concomitant]
  7. TRAMADOL (TRAMADOL HYDROCHLORIDE) [Concomitant]

REACTIONS (6)
  - Ulna fracture [None]
  - Radius fracture [None]
  - Wrist fracture [None]
  - Fall [None]
  - Pain [None]
  - Osteoporosis [None]
